FAERS Safety Report 11686974 (Version 2)
Quarter: 2015Q4

REPORT INFORMATION
  Report Type: Spontaneous
  Country: US (occurrence: US)
  Receive Date: 20151030
  Receipt Date: 20151109
  Transmission Date: 20160304
  Serious: No
  Sender: FDA-Public Use
  Company Number: US-BAYER-2015-455377

PATIENT
  Age: 51 Year
  Sex: Female

DRUGS (4)
  1. NEXAVAR [Suspect]
     Active Substance: SORAFENIB
     Indication: DESMOID TUMOUR
     Dosage: 400 MG, QD
     Route: 048
     Dates: start: 20151002
  2. NEXAVAR [Suspect]
     Active Substance: SORAFENIB
     Indication: SOFT TISSUE SARCOMA
  3. SULINDAC. [Concomitant]
     Active Substance: SULINDAC
  4. TAMOXIFEN CITRATE. [Concomitant]
     Active Substance: TAMOXIFEN CITRATE

REACTIONS (9)
  - Arthralgia [Not Recovered/Not Resolved]
  - Pain of skin [Not Recovered/Not Resolved]
  - Palmar-plantar erythrodysaesthesia syndrome [Not Recovered/Not Resolved]
  - Arthritis [Not Recovered/Not Resolved]
  - Rash generalised [Not Recovered/Not Resolved]
  - Off label use [None]
  - Pruritus [Not Recovered/Not Resolved]
  - Pruritus [Not Recovered/Not Resolved]
  - Fatigue [Not Recovered/Not Resolved]

NARRATIVE: CASE EVENT DATE: 20151021
